FAERS Safety Report 10872423 (Version 1)
Quarter: 2015Q1

REPORT INFORMATION
  Report Type: Report from Study
  Country: US (occurrence: US)
  Receive Date: 20150226
  Receipt Date: 20150226
  Transmission Date: 20150721
  Serious: Yes (Death)
  Sender: FDA-Public Use
  Company Number: US-ROCHE-1090383

PATIENT
  Age: 47 Year
  Sex: Female

DRUGS (13)
  1. AVASTIN [Suspect]
     Active Substance: BEVACIZUMAB
     Indication: LUNG NEOPLASM MALIGNANT
     Route: 042
     Dates: start: 20090129
  2. BENADRYL [Concomitant]
     Active Substance: DIPHENHYDRAMINE HYDROCHLORIDE
     Route: 042
  3. TARCEVA [Suspect]
     Active Substance: ERLOTINIB HYDROCHLORIDE
     Indication: LUNG NEOPLASM MALIGNANT
     Route: 048
  4. TAXOL [Concomitant]
     Active Substance: PACLITAXEL
     Route: 042
  5. ZOFRAN [Concomitant]
     Active Substance: ONDANSETRON HYDROCHLORIDE
     Route: 042
  6. TAGAMET [Concomitant]
     Active Substance: CIMETIDINE
     Route: 042
  7. CARBOPLATIN. [Concomitant]
     Active Substance: CARBOPLATIN
     Route: 042
  8. DECADRON [Concomitant]
     Active Substance: DEXAMETHASONE
     Route: 042
  9. ALIMTA [Concomitant]
     Active Substance: PEMETREXED DISODIUM
     Route: 042
  10. VICODIN [Concomitant]
     Active Substance: ACETAMINOPHEN\HYDROCODONE BITARTRATE
  11. SENOKOT [Concomitant]
     Active Substance: SENNOSIDES
  12. DILAUDID [Concomitant]
     Active Substance: HYDROMORPHONE HYDROCHLORIDE
     Indication: PAIN
     Dosage: EVERY 2-3 HOURS, PRN
     Route: 065
  13. ATIVAN [Concomitant]
     Active Substance: LORAZEPAM

REACTIONS (11)
  - Blood pressure increased [Unknown]
  - Feeling hot [Unknown]
  - Chest pain [Recovering/Resolving]
  - Musculoskeletal pain [Recovering/Resolving]
  - Death [Fatal]
  - Constipation [Recovering/Resolving]
  - Vomiting [Recovered/Resolved]
  - Neck pain [Recovering/Resolving]
  - Anxiety [Unknown]
  - Nausea [Recovered/Resolved]
  - Injection site pain [Unknown]

NARRATIVE: CASE EVENT DATE: 20100923
